FAERS Safety Report 10168199 (Version 1)
Quarter: 2014Q2

REPORT INFORMATION
  Report Type: Spontaneous
  Country: US (occurrence: US)
  Receive Date: 20140512
  Receipt Date: 20140512
  Transmission Date: 20141212
  Serious: No
  Sender: FDA-Public Use
  Company Number: US-ASTRAZENECA-2013SE82758

PATIENT
  Age: 75 Year
  Sex: Female
  Weight: 57.2 kg

DRUGS (3)
  1. FASLODEX [Suspect]
     Indication: BREAST CANCER
     Route: 030
  2. CALCIUM [Concomitant]
     Dosage: DAILY
     Route: 065
  3. VOT D [Concomitant]
     Dosage: DAILY
     Route: 065

REACTIONS (3)
  - Blood pressure fluctuation [Unknown]
  - Unevaluable event [Unknown]
  - Off label use [Unknown]
